FAERS Safety Report 21590538 (Version 1)
Quarter: 2022Q4

REPORT INFORMATION
  Report Type: Spontaneous
  Country: US (occurrence: US)
  Receive Date: 20221114
  Receipt Date: 20221114
  Transmission Date: 20230113
  Serious: Yes (Hospitalization, Other)
  Sender: FDA-Public Use
  Company Number: US-MLMSERVICE-20220222-3390264-1

PATIENT
  Age: 17 Year

DRUGS (4)
  1. ALPRAZOLAM [Suspect]
     Active Substance: ALPRAZOLAM
     Indication: Post-traumatic stress disorder
     Dosage: UNK UNK, PRN
     Route: 065
  2. PROPRANOLOL [Suspect]
     Active Substance: PROPRANOLOL HYDROCHLORIDE
     Indication: Anxiety
     Dosage: UNK
     Route: 065
  3. ESCITALOPRAM [Suspect]
     Active Substance: ESCITALOPRAM OXALATE
     Indication: Depression
     Dosage: UNK
     Route: 065
  4. SERTRALINE [Concomitant]
     Active Substance: SERTRALINE HYDROCHLORIDE
     Indication: Mental disorder
     Dosage: 25 MG, DAILY
     Route: 065

REACTIONS (9)
  - Memory impairment [Unknown]
  - Suicide attempt [Unknown]
  - Drug ineffective [Unknown]
  - Haemorrhage [Unknown]
  - Joint injury [Unknown]
  - Panic attack [Unknown]
  - Flashback [Not Recovered/Not Resolved]
  - Hyperarousal [Unknown]
  - Off label use [Unknown]
